FAERS Safety Report 11742079 (Version 6)
Quarter: 2025Q1

REPORT INFORMATION
  Report Type: Spontaneous
  Country: US (occurrence: US)
  Receive Date: 20151116
  Receipt Date: 20250310
  Transmission Date: 20250409
  Serious: Yes (Other)
  Sender: PFIZER
  Company Number: US-PFIZER INC-2015388599

PATIENT
  Age: 47 Year
  Sex: Female
  Weight: 72 kg

DRUGS (13)
  1. XELJANZ [Suspect]
     Active Substance: TOFACITINIB CITRATE
     Indication: Arthritis
     Dosage: 5 MG, 2X/DAY
     Dates: start: 2014, end: 2019
  2. XELJANZ [Suspect]
     Active Substance: TOFACITINIB CITRATE
     Indication: Osteoarthritis
     Dosage: 1 DF, 1X/DAY
     Dates: start: 202407
  3. XELJANZ [Suspect]
     Active Substance: TOFACITINIB CITRATE
     Indication: Rheumatoid arthritis
     Dosage: 1 DF, 1X/DAY
  4. INFLUENZA VIRUS VACCINE [Suspect]
     Active Substance: INFLUENZA VIRUS VACCINE
     Indication: Immunisation
  5. TRAMADOL [Concomitant]
     Active Substance: TRAMADOL
     Indication: Pain
     Dates: start: 2014
  6. CLINORIL [Concomitant]
     Active Substance: SULINDAC
     Indication: Arthritis
     Dosage: 200 MG, 2X/DAY
  7. FOLIC ACID [Concomitant]
     Active Substance: FOLIC ACID
     Dosage: 1 MG, DAILY
     Dates: start: 2014
  8. METHOTREXATE [Concomitant]
     Active Substance: METHOTREXATE
     Indication: Immunosuppressant drug therapy
     Dosage: 20 MG, WEEKLY (10MG IN THE MORNING AND 10MG IN THE EVENING)
     Dates: start: 2014
  9. MINERALS\VITAMINS [Concomitant]
     Active Substance: MINERALS\VITAMINS
     Indication: Rheumatoid arthritis
     Dosage: UNK UNK, 1X/DAY
  10. MINERALS\VITAMINS [Concomitant]
     Active Substance: MINERALS\VITAMINS
     Indication: Vegetarian
  11. VITAMINS [Concomitant]
     Active Substance: VITAMINS
     Indication: Rheumatoid arthritis
     Dosage: 1 DF, DAILY (ONE VITAMIN DAILY)
  12. VITAMINS [Concomitant]
     Active Substance: VITAMINS
     Indication: Vegetarian
  13. PREDNISOLONE [Concomitant]
     Active Substance: PREDNISOLONE
     Indication: Arthritis
     Dosage: ONE TABLET DAILY

REACTIONS (13)
  - Arthritis [Unknown]
  - Arthritis infective [Unknown]
  - Joint effusion [Unknown]
  - Viral infection [Unknown]
  - Weight increased [Unknown]
  - Impaired work ability [Unknown]
  - Grip strength decreased [Unknown]
  - Joint injury [Unknown]
  - Joint swelling [Unknown]
  - Arthralgia [Unknown]
  - Infection [Unknown]
  - Immune system disorder [Unknown]
  - Influenza [Unknown]

NARRATIVE: CASE EVENT DATE: 20240801
